FAERS Safety Report 11520835 (Version 2)
Quarter: 2015Q4

REPORT INFORMATION
  Report Type: Report from Study
  Country: US (occurrence: US)
  Receive Date: 20150918
  Receipt Date: 20151214
  Transmission Date: 20160304
  Serious: No
  Sender: FDA-Public Use
  Company Number: PHEH2015US000718

PATIENT
  Age: 61 Year
  Sex: Female
  Weight: 70.3 kg

DRUGS (3)
  1. SOLU-MEDROL [Concomitant]
     Active Substance: METHYLPREDNISOLONE SODIUM SUCCINATE
     Indication: PRODUCT USED FOR UNKNOWN INDICATION
     Dosage: UNK
     Route: 065
  2. GILENYA [Suspect]
     Active Substance: FINGOLIMOD HYDROCHLORIDE
     Indication: MULTIPLE SCLEROSIS
     Dosage: 0.5 MG, QD
     Route: 048
     Dates: start: 2012
  3. GILENYA [Suspect]
     Active Substance: FINGOLIMOD HYDROCHLORIDE
     Dosage: 0.5 MG, QD
     Route: 048
     Dates: start: 20150106

REACTIONS (5)
  - Memory impairment [Unknown]
  - Dizziness [Unknown]
  - Blood pressure increased [Unknown]
  - Multiple sclerosis [Not Recovered/Not Resolved]
  - Cardiac disorder [Unknown]

NARRATIVE: CASE EVENT DATE: 20150106
